FAERS Safety Report 20001856 (Version 1)
Quarter: 2021Q4

REPORT INFORMATION
  Report Type: Spontaneous
  Country: US (occurrence: US)
  Receive Date: 20211027
  Receipt Date: 20211027
  Transmission Date: 20220303
  Serious: Yes (Other)
  Sender: FDA-Public Use
  Company Number: US-PFIZER INC-202101381622

PATIENT
  Age: 67 Year
  Sex: Male

DRUGS (1)
  1. BUMETANIDE [Suspect]
     Active Substance: BUMETANIDE
     Indication: Hypoxia
     Dosage: UNK

REACTIONS (1)
  - Metabolic alkalosis [Unknown]
